FAERS Safety Report 7221002-6 (Version None)
Quarter: 2011Q1

REPORT INFORMATION
  Report Type: 
  Country: None (occurrence: None)
  Receive Date: 20110112
  Receipt Date: 20110110
  Transmission Date: 20110831
  Serious: Yes (Hospitalization)
  Sender: FDA-Public Use
  Company Number: DE-BRISTOL-MYERS SQUIBB COMPANY-15477813

PATIENT
  Age: 50 Year
  Sex: Male

DRUGS (3)
  1. TRUVADA [Suspect]
     Indication: HIV INFECTION
     Dosage: FOR ABOUT 5-6YEARS
  2. REYATAZ [Suspect]
     Indication: HIV INFECTION
     Dosage: FOR ABOUT 5-6YEARS
  3. NORVIR [Suspect]
     Indication: HIV INFECTION
     Dosage: FOR ABOUT 5-6YEARS

REACTIONS (1)
  - SCOTOMA [None]
